FAERS Safety Report 4506632-4 (Version None)
Quarter: 2004Q4

REPORT INFORMATION
  Report Type: 
  Country: None (occurrence: None)
  Receive Date: 20041117
  Receipt Date: 20041104
  Transmission Date: 20050328
  Serious: Yes (Other)
  Sender: FDA-Public Use
  Company Number: 2004088665

PATIENT
  Sex: Female
  Weight: 98.8842 kg

DRUGS (6)
  1. MINIPRESS [Suspect]
     Indication: HYPERTENSION
     Dosage: ORAL
     Route: 048
  2. PRAZOSIN GITS [Suspect]
     Indication: HYPERTENSION
     Dates: end: 20030101
  3. ATENOLOL [Concomitant]
  4. LEVOTHYROXINE SODIUM [Concomitant]
  5. DIURETICS (DIURETICS) [Suspect]
     Indication: ILL-DEFINED DISORDER
  6. CIMETIDINE [Concomitant]

REACTIONS (1)
  - SYSTEMIC LUPUS ERYTHEMATOSUS [None]
